FAERS Safety Report 7703802-9 (Version None)
Quarter: 2011Q3

REPORT INFORMATION
  Report Type: 
  Country: None (occurrence: None)
  Receive Date: 20110823
  Receipt Date: 20101221
  Transmission Date: 20111222
  Serious: Yes (Death)
  Sender: FDA-Public Use
  Company Number: FR-ROCHE-749234

PATIENT
  Sex: Male
  Weight: 68 kg

DRUGS (3)
  1. CARBOPLATIN [Suspect]
     Indication: CHEMOTHERAPY
     Route: 042
     Dates: start: 20101130, end: 20101130
  2. PEMETREXED [Suspect]
     Indication: CHEMOTHERAPY
     Route: 042
     Dates: start: 20101130, end: 20101130
  3. BEVACIZUMAB [Suspect]
     Indication: CHEMOTHERAPY
     Route: 042
     Dates: start: 20101130, end: 20101130

REACTIONS (1)
  - GENERAL PHYSICAL HEALTH DETERIORATION [None]
